FAERS Safety Report 22257635 (Version 1)
Quarter: 2023Q2

REPORT INFORMATION
  Report Type: Spontaneous
  Country: US (occurrence: US)
  Receive Date: 20230427
  Receipt Date: 20230427
  Transmission Date: 20230722
  Serious: Yes (Hospitalization)
  Sender: FDA-Public Use
  Company Number: US-NOVOPROD-1053996

PATIENT
  Sex: Female

DRUGS (2)
  1. WEGOVY [Suspect]
     Active Substance: SEMAGLUTIDE
     Indication: Insulin resistance
  2. WEGOVY [Suspect]
     Active Substance: SEMAGLUTIDE
     Indication: Polycystic ovaries
     Dosage: UNK
     Route: 058
     Dates: start: 2023

REACTIONS (4)
  - Blood glucose decreased [Recovered/Resolved]
  - Dyspepsia [Recovered/Resolved]
  - Ketonuria [Recovered/Resolved]
  - Product use in unapproved indication [Unknown]

NARRATIVE: CASE EVENT DATE: 20230101
